FAERS Safety Report 15889880 (Version 1)
Quarter: 2019Q1

REPORT INFORMATION
  Report Type: Spontaneous
  Country: US (occurrence: US)
  Receive Date: 20190130
  Receipt Date: 20190130
  Transmission Date: 20190417
  Serious: Yes (Disabling, Other)
  Sender: FDA-Public Use
  Company Number: None

PATIENT
  Age: 66 Year
  Sex: Female
  Weight: 66.6 kg

DRUGS (1)
  1. IRBESAR/H HCTZ 300-12.5 TAB SOL [Suspect]
     Active Substance: HYDROCHLOROTHIAZIDE\IRBESARTAN
     Indication: HYPERTENSION
     Dates: start: 20180701, end: 20190130

REACTIONS (5)
  - Recalled product administered [None]
  - Product substitution issue [None]
  - Dizziness [None]
  - Chest pain [None]
  - Paraesthesia [None]
